FAERS Safety Report 7337135-X (Version None)
Quarter: 2011Q1

REPORT INFORMATION
  Report Type: 
  Country: None (occurrence: None)
  Receive Date: 20110308
  Receipt Date: 20110222
  Transmission Date: 20110831
  Serious: Yes (Hospitalization, Other)
  Sender: FDA-Public Use
  Company Number: US-RANBAXY-2011RR-42118

PATIENT
  Sex: Male

DRUGS (8)
  1. LEVAQUIN [Suspect]
     Indication: BRONCHITIS
     Dosage: 500 MG, QD
     Dates: start: 20031014
  2. LEVAQUIN [Suspect]
     Indication: SINUSITIS
     Dosage: 500 MG, QD
     Dates: start: 20031231
  3. PREDNISOLONE [Suspect]
     Indication: ORGANISING PNEUMONIA
  4. LEVAQUIN [Suspect]
     Indication: CHRONIC OBSTRUCTIVE PULMONARY DISEASE
     Dosage: 500 MG, QD
     Route: 048
     Dates: start: 20040301
  5. LEVAQUIN [Suspect]
     Dosage: 500 MG, QD
     Dates: start: 20040210
  6. PREDNISOLONE [Suspect]
     Indication: CHRONIC OBSTRUCTIVE PULMONARY DISEASE
     Dosage: 60 MG, UNK
     Route: 065
     Dates: start: 20040123, end: 20050926
  7. LEVAQUIN [Suspect]
     Indication: PNEUMONIA
     Dosage: 500 MG, QD
     Dates: start: 20031009
  8. CIPROFLOXACIN [Suspect]
     Indication: PRODUCT USED FOR UNKNOWN INDICATION
     Route: 065

REACTIONS (2)
  - BURSITIS [None]
  - TENDON RUPTURE [None]
